FAERS Safety Report 19003997 (Version 2)
Quarter: 2021Q1

REPORT INFORMATION
  Report Type: Other
  Country: CA (occurrence: CA)
  Receive Date: 20210313
  Receipt Date: 20210330
  Transmission Date: 20210420
  Serious: Yes (Other)
  Sender: FDA-Public Use
  Company Number: CA-CELLTRION INC.-2021CA003017

PATIENT

DRUGS (5)
  1. VALACICLOVIR [Concomitant]
     Active Substance: VALACYCLOVIR HYDROCHLORIDE
     Indication: PROPHYLAXIS
  2. RITUXIMAB (UNKNOWN) [Suspect]
     Active Substance: RITUXIMAB
     Indication: AUTOIMMUNE RETINOPATHY
     Dosage: 1000 MG, CYCLICAL
     Route: 042
  3. ONDANSETRON [Concomitant]
     Active Substance: ONDANSETRON
     Indication: VOMITING
  4. BORTEZOMIB. [Suspect]
     Active Substance: BORTEZOMIB
     Indication: AUTOIMMUNE RETINOPATHY
     Dosage: 1.5 MG/M2, CYCLICAL
     Route: 058
  5. DEXAMETHASONE. [Concomitant]
     Active Substance: DEXAMETHASONE
     Indication: AUTOIMMUNE RETINOPATHY
     Dosage: 8 MG, CYCLICAL
     Route: 048

REACTIONS (6)
  - Injection site inflammation [Unknown]
  - Fatigue [Unknown]
  - Epigastric discomfort [Unknown]
  - Neuropathy peripheral [Unknown]
  - Constipation [Unknown]
  - Off label use [Unknown]
